FAERS Safety Report 5710727-7 (Version None)
Quarter: 2008Q2

REPORT INFORMATION
  Report Type: 
  Country: None (occurrence: None)
  Receive Date: 20080421
  Receipt Date: 20080408
  Transmission Date: 20081010
  Serious: Yes (Other)
  Sender: FDA-Public Use
  Company Number: US-JNJFOC-20080402456

PATIENT
  Sex: Female

DRUGS (7)
  1. REMICADE [Suspect]
     Indication: DRUG EXPOSURE DURING PREGNANCY
     Route: 015
  2. VITAMIN TAB [Concomitant]
  3. CANASA [Concomitant]
  4. PREDNISONE [Concomitant]
  5. PRILOSEC [Concomitant]
  6. RANITIDINE [Concomitant]
  7. LEVOXYL [Concomitant]

REACTIONS (4)
  - JAUNDICE NEONATAL [None]
  - MULTIPLE ALLERGIES [None]
  - RESPIRATORY SYNCYTIAL VIRUS INFECTION [None]
  - UMBILICAL CORD VASCULAR DISORDER [None]
